FAERS Safety Report 6187397-X (Version None)
Quarter: 2009Q2

REPORT INFORMATION
  Report Type: 
  Country: None (occurrence: None)
  Receive Date: 20090512
  Receipt Date: 20090504
  Transmission Date: 20091009
  Serious: Yes (Hospitalization)
  Sender: FDA-Public Use
  Company Number: B0573456A

PATIENT
  Sex: Female

DRUGS (2)
  1. AUGMENTIN '125' [Suspect]
     Indication: TOOTHACHE
     Route: 048
     Dates: start: 20090410, end: 20090410
  2. OKI [Suspect]
     Indication: TOOTHACHE
     Route: 048
     Dates: start: 20090410, end: 20090410

REACTIONS (2)
  - DYSPHONIA [None]
  - RASH [None]
